FAERS Safety Report 8229779-8 (Version None)
Quarter: 2012Q1

REPORT INFORMATION
  Report Type: 
  Country: None (occurrence: None)
  Receive Date: 20120322
  Receipt Date: 20120313
  Transmission Date: 20120608
  Serious: Yes (Other)
  Sender: FDA-Public Use
  Company Number: CA-ASTRAZENECA-2012SE10147

PATIENT
  Age: 67 Year
  Sex: Male

DRUGS (1)
  1. SYMBICORT [Suspect]
     Indication: EMPHYSEMA
     Dosage: 200/6 MCG, FIVE DOSES, THREE TIMES
     Route: 055
     Dates: start: 20020402

REACTIONS (2)
  - DYSPNOEA [None]
  - DRUG INEFFECTIVE [None]
